FAERS Safety Report 17523790 (Version 2)
Quarter: 2020Q3

REPORT INFORMATION
  Report Type: Report from Study
  Country: US (occurrence: US)
  Receive Date: 20200310
  Receipt Date: 20200822
  Transmission Date: 20201102
  Serious: Yes (Other)
  Sender: FDA-Public Use
  Company Number: US-ACTELION-A-US2020-202757

PATIENT
  Sex: Female
  Weight: 90.25 kg

DRUGS (3)
  1. ADCIRCA [Concomitant]
     Active Substance: TADALAFIL
  2. UPTRAVI [Suspect]
     Active Substance: SELEXIPAG
     Indication: PULMONARY ARTERIAL HYPERTENSION
     Dosage: 1600 MCG, BID
     Route: 048
  3. AMBRISENTAN [Concomitant]
     Active Substance: AMBRISENTAN

REACTIONS (5)
  - Exposure during pregnancy [Unknown]
  - Abortion spontaneous [Unknown]
  - Cardiac flutter [Unknown]
  - Palpitations [Unknown]
  - Dyspnoea [Not Recovered/Not Resolved]
